FAERS Safety Report 23813378 (Version 1)
Quarter: 2024Q2

REPORT INFORMATION
  Report Type: Spontaneous
  Country: US (occurrence: US)
  Receive Date: 20240503
  Receipt Date: 20240503
  Transmission Date: 20240715
  Serious: No
  Sender: FDA-Public Use
  Company Number: US-BRISTOL-MYERS SQUIBB COMPANY-2024-068678

PATIENT
  Age: 82 Year
  Sex: Female
  Weight: 76.2 kg

DRUGS (2)
  1. REVLIMID [Suspect]
     Active Substance: LENALIDOMIDE
     Indication: Plasma cell myeloma
     Route: 048
  2. ACYCLOVIR [Suspect]
     Active Substance: ACYCLOVIR
     Indication: Product used for unknown indication

REACTIONS (5)
  - Fatigue [Unknown]
  - Asthenia [Unknown]
  - Dyspnoea exertional [Unknown]
  - Rash papular [Unknown]
  - Rash pruritic [Unknown]
